FAERS Safety Report 23225340 (Version 2)
Quarter: 2023Q4

REPORT INFORMATION
  Report Type: Spontaneous
  Country: US (occurrence: None)
  Receive Date: 20231124
  Receipt Date: 20231129
  Transmission Date: 20240109
  Serious: Yes (Other)
  Sender: FDA-Public Use
  Company Number: 2023A262765

PATIENT
  Age: 67 Year
  Sex: Female

DRUGS (2)
  1. TAGRISSO [Suspect]
     Active Substance: OSIMERTINIB
     Indication: Non-small cell lung cancer
     Dosage: 80.0MG UNKNOWN
     Route: 048
     Dates: start: 20230201
  2. MINOXIDIL [Concomitant]
     Active Substance: MINOXIDIL
     Indication: Product used for unknown indication

REACTIONS (13)
  - Non-small cell lung cancer recurrent [Unknown]
  - Metastases to central nervous system [Unknown]
  - Drug ineffective [Unknown]
  - Alopecia [Unknown]
  - Acne [Unknown]
  - Thirst [Unknown]
  - Fatigue [Unknown]
  - Diabetes insipidus [Unknown]
  - Urinary tract disorder [Unknown]
  - Dysgeusia [Unknown]
  - Candida infection [Unknown]
  - Rash [Unknown]
  - Stomatitis [Unknown]
